FAERS Safety Report 9668050 (Version 2)
Quarter: 2014Q3

REPORT INFORMATION
  Report Type: Spontaneous
  Country: US (occurrence: None)
  Receive Date: 20131101
  Receipt Date: 20140707
  Transmission Date: 20150326
  Serious: Yes (Hospitalization, Other)
  Sender: FDA-Public Use
  Company Number: 2013-US-002283

PATIENT
  Age: 56 Year
  Sex: Female
  Weight: 67.1 kg

DRUGS (10)
  1. XYREM [Suspect]
     Active Substance: SODIUM OXYBATE
     Indication: SLEEP DISORDER
     Route: 048
     Dates: start: 200705, end: 200706
  2. XARELTO [Concomitant]
     Active Substance: RIVAROXABAN
  3. AMLODIPINE [Suspect]
     Active Substance: AMLODIPINE BESYLATE
     Indication: HYPERTENSION
     Route: 048
     Dates: start: 201309, end: 2013
  4. LISINOPRIL (LISINOPRIL) [Suspect]
     Active Substance: LISINOPRIL
     Indication: HYPERTENSION
     Dates: start: 201307, end: 201309
  5. CYMBALTA [Concomitant]
     Active Substance: DULOXETINE HYDROCHLORIDE
  6. MAGNESIUM (MAGNESIUM) [Concomitant]
     Active Substance: MAGNESIUM
  7. LYRICA( PREGAMBLIN) [Concomitant]
  8. COTEF (HYDROCORTISONE CIPIONATE) [Concomitant]
  9. KEPPRA [Concomitant]
     Active Substance: LEVETIRACETAM
  10. POTASSIUM (POTASSIUM) [Concomitant]
     Active Substance: POTASSIUM

REACTIONS (3)
  - Hypertension [None]
  - Off label use [None]
  - Blood pressure fluctuation [None]

NARRATIVE: CASE EVENT DATE: 201309
